FAERS Safety Report 9283851 (Version 1)
Quarter: 2013Q2

REPORT INFORMATION
  Report Type: Spontaneous
  Country: US (occurrence: US)
  Receive Date: 20130510
  Receipt Date: 20130510
  Transmission Date: 20140414
  Serious: Yes (Other)
  Sender: FDA-Public Use
  Company Number: US-PFIZER INC-2013144204

PATIENT
  Age: 13 Year
  Sex: Female
  Weight: 89.34 kg

DRUGS (2)
  1. DILANTIN-125 [Suspect]
     Indication: CONVULSION
     Dosage: UNK, 3X/DAY
     Dates: start: 1962, end: 1982
  2. SIMVASTATIN [Concomitant]
     Indication: BLOOD CHOLESTEROL INCREASED
     Dosage: 40 MG, DAILY

REACTIONS (11)
  - Deafness [Unknown]
  - Blindness [Unknown]
  - Attention deficit/hyperactivity disorder [Unknown]
  - Depression [Unknown]
  - Cognitive disorder [Unknown]
  - Oral mucosal blistering [Unknown]
  - Tooth erosion [Unknown]
  - Gingivitis [Unknown]
  - Disturbance in attention [Unknown]
  - Fatigue [Unknown]
  - Amnesia [Unknown]
